FAERS Safety Report 26128324 (Version 1)
Quarter: 2025Q4

REPORT INFORMATION
  Report Type: Spontaneous
  Country: US (occurrence: US)
  Receive Date: 20251207
  Receipt Date: 20251207
  Transmission Date: 20260118
  Serious: No
  Sender: ASTELLAS
  Company Number: US-ASTELLAS-2025-AER-066275

PATIENT
  Age: 79 Year
  Sex: Female

DRUGS (1)
  1. VEOZAH [Suspect]
     Active Substance: FEZOLINETANT
     Indication: Menopause
     Dosage: TAKING SAME TIME IN THE EVENING
     Route: 065
     Dates: start: 202511

REACTIONS (2)
  - Menopausal symptoms [Unknown]
  - Drug ineffective [Unknown]
